FAERS Safety Report 23874609 (Version 1)
Quarter: 2024Q2

REPORT INFORMATION
  Report Type: Spontaneous
  Country: IT (occurrence: IT)
  Receive Date: 20240520
  Receipt Date: 20240520
  Transmission Date: 20240716
  Serious: Yes (Other)
  Sender: FDA-Public Use
  Company Number: None

PATIENT
  Age: 23 Year
  Sex: Male

DRUGS (7)
  1. VOLTAREN [Suspect]
     Active Substance: DICLOFENAC SODIUM
     Indication: Medication error
     Dosage: 75 MG, UNK
     Route: 030
     Dates: start: 20190114, end: 20190114
  2. VOLTAREN [Suspect]
     Active Substance: DICLOFENAC SODIUM
     Indication: Toothache
  3. LINCOCIN [Suspect]
     Active Substance: LINCOMYCIN
     Indication: Medication error
     Dosage: 1200 MG, UNK
     Route: 030
     Dates: start: 20190114, end: 20190114
  4. LINCOCIN [Suspect]
     Active Substance: LINCOMYCIN
     Indication: Toothache
  5. KETOROLAC TROMETHAMINE [Suspect]
     Active Substance: KETOROLAC TROMETHAMINE
     Indication: Medication error
     Dosage: 10 MG, UNK
     Route: 030
     Dates: start: 20190114, end: 20190114
  6. KETOROLAC TROMETHAMINE [Suspect]
     Active Substance: KETOROLAC TROMETHAMINE
     Indication: Toothache
  7. NIMESULIDE [Concomitant]
     Active Substance: NIMESULIDE
     Indication: Product used for unknown indication
     Dosage: UNK
     Route: 065

REACTIONS (5)
  - Toxicity to various agents [Recovering/Resolving]
  - Tachycardia [Recovering/Resolving]
  - Drug abuse [Recovering/Resolving]
  - Palpitations [Recovering/Resolving]
  - Abdominal pain [Recovering/Resolving]

NARRATIVE: CASE EVENT DATE: 20190114
